FAERS Safety Report 12344616 (Version 2)
Quarter: 2016Q4

REPORT INFORMATION
  Report Type: Spontaneous
  Country: US (occurrence: US)
  Receive Date: 20160507
  Receipt Date: 20161212
  Transmission Date: 20170207
  Serious: Yes (Hospitalization)
  Sender: FDA-Public Use
  Company Number: US-JNJFOC-20160404660

PATIENT
  Age: 84 Year
  Sex: Female
  Weight: 86 kg

DRUGS (7)
  1. XARELTO [Suspect]
     Active Substance: RIVAROXABAN
     Indication: ATRIAL FIBRILLATION
     Dosage: 20 MG ONE TABLET DAILY OR 15 MG DAILY WITH DINNER
     Route: 048
     Dates: start: 2014, end: 201406
  2. XARELTO [Suspect]
     Active Substance: RIVAROXABAN
     Indication: THROMBOSIS PROPHYLAXIS
     Dosage: 20 MG ONE TABLET DAILY OR 15 MG DAILY WITH DINNER
     Route: 048
     Dates: start: 2014, end: 201406
  3. SYNTHROID [Concomitant]
     Active Substance: LEVOTHYROXINE SODIUM
     Indication: HYPOTHYROIDISM
     Route: 048
     Dates: start: 1996
  4. XARELTO [Suspect]
     Active Substance: RIVAROXABAN
     Indication: THROMBOSIS PROPHYLAXIS
     Dosage: 20 MG ONE TABLET DAILY OR 15 MG DAILY WITH DINNER
     Route: 048
     Dates: start: 20130216, end: 201404
  5. XARELTO [Suspect]
     Active Substance: RIVAROXABAN
     Indication: ATRIAL FIBRILLATION
     Dosage: 20 MG ONE TABLET DAILY OR 15 MG DAILY WITH DINNER
     Route: 048
     Dates: start: 20130216, end: 201404
  6. XARELTO [Suspect]
     Active Substance: RIVAROXABAN
     Indication: CEREBROVASCULAR ACCIDENT PROPHYLAXIS
     Dosage: 20 MG ONE TABLET DAILY OR 15 MG DAILY WITH DINNER
     Route: 048
     Dates: start: 2014, end: 201406
  7. XARELTO [Suspect]
     Active Substance: RIVAROXABAN
     Indication: CEREBROVASCULAR ACCIDENT PROPHYLAXIS
     Dosage: 20 MG ONE TABLET DAILY OR 15 MG DAILY WITH DINNER
     Route: 048
     Dates: start: 20130216, end: 201404

REACTIONS (1)
  - Diverticulum intestinal haemorrhagic [Recovering/Resolving]

NARRATIVE: CASE EVENT DATE: 20140413
